FAERS Safety Report 7567907-8 (Version None)
Quarter: 2011Q2

REPORT INFORMATION
  Report Type: 
  Country: None (occurrence: None)
  Receive Date: 20110623
  Receipt Date: 20110622
  Transmission Date: 20111010
  Serious: Yes (Hospitalization)
  Sender: FDA-Public Use
  Company Number: IT-SANOFI-AVENTIS-2011SA039302

PATIENT
  Age: 54 Year
  Sex: Female

DRUGS (3)
  1. COLECALCIFEROL [Concomitant]
  2. HUMIRA [Suspect]
     Indication: RHEUMATOID ARTHRITIS
     Route: 058
     Dates: start: 20031009, end: 20110603
  3. ARAVA [Suspect]
     Indication: RHEUMATOID ARTHRITIS
     Route: 048
     Dates: start: 20060406, end: 20110621

REACTIONS (1)
  - LEIOMYOSARCOMA [None]
